FAERS Safety Report 14340504 (Version 3)
Quarter: 2019Q3

REPORT INFORMATION
  Report Type: Report from Study
  Country: US (occurrence: US)
  Receive Date: 20180101
  Receipt Date: 20190829
  Transmission Date: 20191004
  Serious: No
  Sender: FDA-Public Use
  Company Number: PHEH2017US042070

PATIENT
  Sex: Female

DRUGS (2)
  1. ILARIS [Suspect]
     Active Substance: CANAKINUMAB
     Indication: STILL^S DISEASE
     Dosage: 131 MG, Q4W
     Route: 058
     Dates: start: 20170728
  2. ILARIS [Suspect]
     Active Substance: CANAKINUMAB
     Dosage: 118 MG, UNK
     Route: 058

REACTIONS (6)
  - Abdominal pain [Unknown]
  - Ill-defined disorder [Unknown]
  - Pyrexia [Unknown]
  - Upper respiratory tract infection [Unknown]
  - Incorrect dose administered [Unknown]
  - Inappropriate schedule of product administration [Unknown]
